FAERS Safety Report 7015323-X (Version None)
Quarter: 2010Q3

REPORT INFORMATION
  Report Type: 
  Country: None (occurrence: None)
  Receive Date: 20100927
  Receipt Date: 20100922
  Transmission Date: 20110219
  Serious: No
  Sender: FDA-Public Use
  Company Number: US-TEVA-249424USA

PATIENT
  Sex: Male
  Weight: 86.26 kg

DRUGS (3)
  1. AZILECT [Suspect]
     Indication: PARKINSON'S DISEASE
     Route: 048
     Dates: start: 20100401
  2. LOSARTAN POTASSIUM [Concomitant]
  3. METOPROLOL [Concomitant]

REACTIONS (1)
  - BLOOD PRESSURE INCREASED [None]
